FAERS Safety Report 17673878 (Version 1)
Quarter: 2020Q2

REPORT INFORMATION
  Report Type: Report from Study
  Country: US (occurrence: US)
  Receive Date: 20200416
  Receipt Date: 20200416
  Transmission Date: 20200714
  Serious: No
  Sender: FDA-Public Use
  Company Number: NVSC2020US101325

PATIENT
  Sex: Female

DRUGS (1)
  1. GILENYA [Suspect]
     Active Substance: FINGOLIMOD HYDROCHLORIDE
     Indication: MULTIPLE SCLEROSIS
     Dosage: 0.5 MG, QD,  11-??-2018
     Route: 048

REACTIONS (5)
  - Palpitations [Unknown]
  - Hypoaesthesia [Unknown]
  - Myalgia [Unknown]
  - Disturbance in attention [Unknown]
  - Fatigue [Unknown]
